FAERS Safety Report 22375856 (Version 1)
Quarter: 2023Q2

REPORT INFORMATION
  Report Type: Spontaneous
  Country: US (occurrence: US)
  Receive Date: 20230527
  Receipt Date: 20230527
  Transmission Date: 20230721
  Serious: No
  Sender: FDA-Public Use
  Company Number: US-PERRIGO-22US013533

PATIENT
  Age: 59 Year
  Sex: Male
  Weight: 99.773 kg

DRUGS (3)
  1. MINOXIDIL [Suspect]
     Active Substance: MINOXIDIL
     Indication: Alopecia
     Dosage: 1/2 CAPFUL, BID
     Route: 061
     Dates: start: 20211201, end: 20220808
  2. FINASTERIDE [Concomitant]
     Active Substance: FINASTERIDE
     Indication: Alopecia
     Dosage: UNK
     Route: 065
     Dates: start: 20211201
  3. KETOCONAZOLE [Concomitant]
     Active Substance: KETOCONAZOLE
     Indication: Alopecia
     Dosage: UNK
     Route: 065
     Dates: start: 20211201

REACTIONS (4)
  - Application site discomfort [Recovered/Resolved]
  - Application site vesicles [Recovered/Resolved]
  - Application site pain [Recovered/Resolved]
  - Accidental exposure to product [Unknown]

NARRATIVE: CASE EVENT DATE: 20211201
